FAERS Safety Report 8934843 (Version 2)
Quarter: 2012Q4

REPORT INFORMATION
  Report Type: Report from Study
  Country: JP (occurrence: JP)
  Receive Date: 20121129
  Receipt Date: 20121211
  Transmission Date: 20130627
  Serious: Yes (Other)
  Sender: FDA-Public Use
  Company Number: JP-ASTELLAS-2012US011497

PATIENT
  Age: 63 Year
  Sex: Female
  Weight: 49 kg

DRUGS (17)
  1. ERLOTINIB TABLET [Suspect]
     Indication: ADENOCARCINOMA
     Dosage: 100 mg, UID/QD
     Route: 048
     Dates: start: 20120529, end: 20120709
  2. ERLOTINIB TABLET [Suspect]
     Dosage: 50 mg, UID/QD
     Route: 048
     Dates: start: 20120723, end: 20120803
  3. GEMCITABINE                        /01215702/ [Suspect]
     Indication: ADENOCARCINOMA PANCREAS
     Dosage: 800 mg/m2, Unknown/D
     Route: 042
     Dates: start: 20120528, end: 20120528
  4. GEMCITABINE                        /01215702/ [Suspect]
     Dosage: 600 mg/m2, Unknown/D
     Route: 042
     Dates: start: 20120611, end: 20120611
  5. GEMCITABINE                        /01215702/ [Suspect]
     Dosage: 600 mg/m2, Unknown/D
     Route: 042
     Dates: start: 20120618, end: 20120618
  6. GEMCITABINE                        /01215702/ [Suspect]
     Dosage: 600 mg/m2, Unknown/D
     Route: 042
     Dates: start: 20120723, end: 20120723
  7. LOXOPROFEN                         /00890702/ [Concomitant]
     Indication: ADENOCARCINOMA PANCREAS
     Dosage: 180 mg, UID/QD
     Route: 048
     Dates: start: 201208
  8. FENTOS [Concomitant]
     Indication: ADENOCARCINOMA PANCREAS
     Dosage: 1 mg, UID/QD
     Route: 062
  9. LANSOPRAZOLE [Concomitant]
     Indication: ADENOCARCINOMA PANCREAS
     Dosage: 15 mg, UID/QD
     Route: 048
  10. MAGLAX [Concomitant]
     Indication: ADENOCARCINOMA PANCREAS
     Dosage: 990 mg, UID/QD
     Route: 048
     Dates: end: 201208
  11. PURSENIDE [Concomitant]
     Indication: ADENOCARCINOMA PANCREAS
     Dosage: Single use 12 or 24 mg
     Route: 065
  12. SOLANAX [Concomitant]
     Indication: ADENOCARCINOMA PANCREAS
     Dosage: 0.4 mg, UID/QD
     Route: 048
     Dates: end: 20120717
  13. DEXART [Concomitant]
     Indication: ADENOCARCINOMA PANCREAS
     Dosage: 3.3 mg, UID/QD
     Route: 042
     Dates: start: 20120528, end: 20120528
  14. DEXART [Concomitant]
     Dosage: 3.3 mg, UID/QD
     Route: 042
     Dates: start: 20120611, end: 20120611
  15. HIRUDOID                           /00723701/ [Concomitant]
     Indication: ADENOCARCINOMA PANCREAS
     Dosage: UNK
     Route: 003
     Dates: start: 20120618, end: 201207
  16. LASIX                              /00032601/ [Concomitant]
     Indication: ADENOCARCINOMA PANCREAS
     Dosage: 20 mg, UID/QD
     Route: 048
     Dates: start: 20120618, end: 20120717
  17. ALDACTONE A [Concomitant]
     Indication: PRODUCT USED FOR UNKNOWN INDICATION
     Dosage: 25 mg, UID/QD
     Route: 048
     Dates: start: 20120608

REACTIONS (8)
  - Anaemia [Recovered/Resolved]
  - Platelet count decreased [Recovered/Resolved]
  - Neutrophil count decreased [Recovered/Resolved]
  - Decreased appetite [Recovered/Resolved]
  - Diarrhoea [Recovered/Resolved]
  - Nausea [Recovered/Resolved]
  - Dermatitis acneiform [Recovered/Resolved]
  - Fatigue [Recovered/Resolved]
